FAERS Safety Report 5852530-3 (Version None)
Quarter: 2008Q3

REPORT INFORMATION
  Report Type: 
  Country: None (occurrence: None)
  Receive Date: 20080820
  Receipt Date: 20080820
  Transmission Date: 20090109
  Serious: Yes (Other)
  Sender: FDA-Public Use
  Company Number: None

PATIENT
  Age: 38 Year
  Sex: Female
  Weight: 54.4316 kg

DRUGS (1)
  1. REGLAN [Suspect]
     Indication: ILEUS
     Dosage: 40 MG EVERY 6 HRS IV
     Route: 042
     Dates: start: 20080805, end: 20080810

REACTIONS (4)
  - DEPRESSION [None]
  - DYSKINESIA [None]
  - HALLUCINATION [None]
  - SUICIDAL IDEATION [None]
